FAERS Safety Report 18607420 (Version 7)
Quarter: 2022Q2

REPORT INFORMATION
  Report Type: Report from Study
  Country: US (occurrence: US)
  Receive Date: 20201212
  Receipt Date: 20220426
  Transmission Date: 20220720
  Serious: Yes (Hospitalization, Other)
  Sender: FDA-Public Use
  Company Number: US-TAKEDA-US202028708

PATIENT
  Sex: Female

DRUGS (4)
  1. HUMAN IMMUNOGLOBULIN G [Suspect]
     Active Substance: HUMAN IMMUNOGLOBULIN G
     Indication: Immunodeficiency common variable
     Dosage: UNK
     Route: 042
  2. HUMAN IMMUNOGLOBULIN G [Suspect]
     Active Substance: HUMAN IMMUNOGLOBULIN G
     Dosage: 40 GRAM
     Route: 042
  3. HUMAN IMMUNOGLOBULIN G [Suspect]
     Active Substance: HUMAN IMMUNOGLOBULIN G
     Dosage: UNK
     Route: 058
  4. HAEGARDA [Concomitant]
     Active Substance: HUMAN C1-ESTERASE INHIBITOR
     Indication: Hereditary angioedema
     Route: 058

REACTIONS (28)
  - Weight increased [Unknown]
  - Autism spectrum disorder [Unknown]
  - Anaphylactic reaction [Unknown]
  - Kidney infection [Recovering/Resolving]
  - Infusion related reaction [Unknown]
  - Hereditary angioedema [Unknown]
  - Adverse drug reaction [Unknown]
  - Joint dislocation [Unknown]
  - Stress [Unknown]
  - Gastrointestinal disorder [Unknown]
  - Infusion site rash [Unknown]
  - Fungal foot infection [Unknown]
  - Throat irritation [Unknown]
  - Heart rate increased [Unknown]
  - Infusion site bruising [Unknown]
  - Cough [Unknown]
  - Headache [Unknown]
  - Fatigue [Unknown]
  - Abdominal pain upper [Unknown]
  - Contusion [Unknown]
  - Abdominal distension [Unknown]
  - Nausea [Unknown]
  - Acne [Unknown]
  - Vomiting [Unknown]
  - Menstruation irregular [Unknown]
  - Blood immunoglobulin E decreased [Unknown]
  - Nasopharyngitis [Recovering/Resolving]
  - Therapy interrupted [Unknown]
